FAERS Safety Report 4570345-3 (Version None)
Quarter: 2005Q1

REPORT INFORMATION
  Report Type: 
  Country: None (occurrence: None)
  Receive Date: 20050204
  Receipt Date: 20050124
  Transmission Date: 20050727
  Serious: Yes (Hospitalization)
  Sender: FDA-Public Use
  Company Number: ES-ROCHE-393279

PATIENT
  Age: 63 Year
  Sex: Female

DRUGS (5)
  1. VALIUM [Suspect]
     Route: 048
     Dates: start: 20041015, end: 20041106
  2. NERDIPINA [Suspect]
     Indication: ESSENTIAL HYPERTENSION
     Route: 048
     Dates: start: 20041015, end: 20041106
  3. NEOSIDANTOINA [Suspect]
     Route: 048
     Dates: start: 20041015, end: 20041106
  4. OMEPRAZOLE [Suspect]
     Indication: PEPTIC ULCER
     Route: 048
     Dates: start: 20041015, end: 20041106
  5. DOGMATIL [Suspect]
     Indication: DIZZINESS
     Route: 048
     Dates: start: 20041015, end: 20041106

REACTIONS (1)
  - TOXIC EPIDERMAL NECROLYSIS [None]
